FAERS Safety Report 16879751 (Version 3)
Quarter: 2019Q4

REPORT INFORMATION
  Report Type: Spontaneous
  Country: US (occurrence: US)
  Receive Date: 20191003
  Receipt Date: 20191223
  Transmission Date: 20200122
  Serious: Yes (Hospitalization)
  Sender: FDA-Public Use
  Company Number: US-PFIZER INC-2019426457

PATIENT
  Sex: Female
  Weight: 38.19 kg

DRUGS (2)
  1. PREMARIN [Suspect]
     Active Substance: ESTROGENS, CONJUGATED
     Dosage: UNK, ONCE A DAY (3.25 ONCE A DAY)
     Dates: start: 1983
  2. PREMARIN [Suspect]
     Active Substance: ESTROGENS, CONJUGATED
     Indication: HORMONE THERAPY
     Dosage: 0.03 M-F

REACTIONS (1)
  - Chronic obstructive pulmonary disease [Not Recovered/Not Resolved]
